FAERS Safety Report 5468704-X (Version None)
Quarter: 2007Q3

REPORT INFORMATION
  Report Type: 
  Country: None (occurrence: None)
  Receive Date: 20070924
  Receipt Date: 20070912
  Transmission Date: 20080115
  Serious: Yes (Hospitalization)
  Sender: FDA-Public Use
  Company Number: GXKR2007GB07521

PATIENT
  Age: 79 Year
  Sex: Female
  Weight: 40 kg

DRUGS (7)
  1. BENDROFLUMETHIAZIDE [Suspect]
     Indication: HYPERTENSION
     Dosage: 5 MG, ORAL; 2.5 MG, QD ORAL
     Route: 048
     Dates: start: 20070808
  2. BENDROFLUMETHIAZIDE [Suspect]
     Indication: HYPERTENSION
     Dosage: 5 MG, ORAL; 2.5 MG, QD ORAL
     Route: 048
     Dates: start: 20070808
  3. LISINOPRIL [Suspect]
     Dosage: 40 MG, ORAL
     Route: 048
  4. LERCANIDIPINE [Suspect]
     Indication: HYPERTENSION
     Dosage: 20 MG, ORAL
     Route: 048
     Dates: start: 20070808, end: 20070810
  5. EPROSARTAN      (EPROSARTAN) [Concomitant]
  6. SALBUTAMOL  (SALBUTAMOL) [Concomitant]
  7. FLUTICASONE PROPIONATE W/SALMETEROL XINAFOATE (FLUTICASONE PROPIONATE, [Concomitant]

REACTIONS (6)
  - BLOOD PRESSURE INCREASED [None]
  - CHEST PAIN [None]
  - DIZZINESS [None]
  - DRUG INTERACTION [None]
  - MALAISE [None]
  - VISUAL ACUITY REDUCED [None]
